FAERS Safety Report 10670595 (Version 1)
Quarter: 2014Q4

REPORT INFORMATION
  Report Type: Spontaneous
  Country: US (occurrence: None)
  Receive Date: 20141208
  Receipt Date: 20141208
  Transmission Date: 20150529
  Serious: No
  Sender: FDA-Public Use
  Company Number: 2014TUS008811

PATIENT
  Age: 48 Year
  Sex: Male

DRUGS (13)
  1. INSULIN (INSULIN) [Concomitant]
     Active Substance: INSULIN NOS
  2. BRINTELLIX [Suspect]
     Active Substance: VORTIOXETINE HYDROBROMIDE
     Indication: MAJOR DEPRESSION
     Route: 048
  3. KLONOPIN [Concomitant]
     Active Substance: CLONAZEPAM
  4. BUSPAR (BUSPIRONE HYDROCHLORIDE) [Concomitant]
  5. LUNESTA [Concomitant]
     Active Substance: ESZOPICLONE
  6. UROCIT-K (POTASSIUM CITRATE) [Concomitant]
  7. DIOVAN [Concomitant]
     Active Substance: VALSARTAN
  8. ACTOS [Concomitant]
     Active Substance: PIOGLITAZONE HYDROCHLORIDE
  9. LIPITOR [Concomitant]
     Active Substance: ATORVASTATIN CALCIUM
  10. ALLOPURINOL (ALLOPURINOL) [Concomitant]
     Active Substance: ALLOPURINOL
  11. PRANDIN /01393601/ (REPAGLINIDE) [Concomitant]
  12. SINGULAIR (MONTELUKAST SODIUM) [Concomitant]
  13. HCTZ (HYDROCHLOROTHIAZIDE) [Concomitant]
     Active Substance: HYDROCHLOROTHIAZIDE

REACTIONS (2)
  - Photophobia [None]
  - Nausea [None]
